FAERS Safety Report 6371627-5 (Version None)
Quarter: 2009Q3

REPORT INFORMATION
  Report Type: 
  Country: None (occurrence: None)
  Receive Date: 20090923
  Receipt Date: 20080805
  Transmission Date: 20100115
  Serious: No
  Sender: FDA-Public Use
  Company Number: US-ASTRAZENECA-2008UW11969

PATIENT
  Age: 554 Month
  Sex: Male

DRUGS (2)
  1. SEROQUEL [Suspect]
     Indication: ANXIETY
     Dosage: 100 - 1000MG
     Route: 048
     Dates: start: 19990101, end: 20070101
  2. SEROQUEL [Suspect]
     Indication: DEPRESSION
     Dosage: 100 - 1000MG
     Route: 048
     Dates: start: 19990101, end: 20070101

REACTIONS (1)
  - DIABETES MELLITUS [None]
